FAERS Safety Report 6020511-5 (Version None)
Quarter: 2008Q4

REPORT INFORMATION
  Report Type: 
  Country: None (occurrence: None)
  Receive Date: 20081226
  Receipt Date: 20081218
  Transmission Date: 20090506
  Serious: Yes (Hospitalization, Other)
  Sender: FDA-Public Use
  Company Number: US-ABBOTT-08P-163-0493788-00

PATIENT
  Sex: Female

DRUGS (3)
  1. SYNTHROID [Suspect]
     Indication: HYPOTHYROIDISM
     Route: 048
     Dates: start: 19840101, end: 20020101
  2. SYNTHROID [Suspect]
     Route: 048
     Dates: start: 20030101, end: 20050101
  3. SYNTHROID [Suspect]
     Route: 048

REACTIONS (1)
  - GOITRE [None]
